FAERS Safety Report 10145743 (Version 2)
Quarter: 2014Q2

REPORT INFORMATION
  Report Type: Spontaneous
  Country: US (occurrence: US)
  Receive Date: 20140501
  Receipt Date: 20140501
  Transmission Date: 20141212
  Serious: No
  Sender: FDA-Public Use
  Company Number: US-ABBVIE-13P-163-1127513-00

PATIENT
  Age: 79 Year
  Sex: Female
  Weight: 56.3 kg

DRUGS (3)
  1. CREON [Suspect]
     Indication: DYSPHAGIA
     Dosage: ONE BEFORE EACH MEAL
     Dates: start: 20130729, end: 20130730
  2. NEXIUM [Concomitant]
     Indication: PRODUCT USED FOR UNKNOWN INDICATION
  3. FISH OIL [Concomitant]
     Indication: PRODUCT USED FOR UNKNOWN INDICATION

REACTIONS (5)
  - Off label use [Unknown]
  - Vomiting [Recovered/Resolved]
  - Diarrhoea [Recovered/Resolved]
  - Hypophagia [Recovered/Resolved]
  - Tremor [Recovered/Resolved]
